FAERS Safety Report 17670448 (Version 1)
Quarter: 2020Q2

REPORT INFORMATION
  Report Type: Spontaneous
  Country: US (occurrence: US)
  Receive Date: 20200415
  Receipt Date: 20200415
  Transmission Date: 20200713
  Serious: Yes (Life-Threatening, Hospitalization)
  Sender: FDA-Public Use
  Company Number: None

PATIENT
  Age: 37 Year
  Sex: Female
  Weight: 97.65 kg

DRUGS (4)
  1. WELLBUTRIN [Concomitant]
     Active Substance: BUPROPION HYDROCHLORIDE
     Dates: start: 20150910, end: 20200307
  2. LITHIUM. [Concomitant]
     Active Substance: LITHIUM
     Dates: start: 20150910, end: 20200307
  3. LAMICTAL [Suspect]
     Active Substance: LAMOTRIGINE
     Indication: BIPOLAR II DISORDER
     Route: 048
     Dates: start: 20200224, end: 20200307
  4. SPIRVATO [Concomitant]
     Dates: start: 20200113, end: 20200127

REACTIONS (7)
  - Blood urea increased [None]
  - Serum ferritin increased [None]
  - Encephalitis [None]
  - Haemophagocytic lymphohistiocytosis [None]
  - Liver injury [None]
  - Blood creatine increased [None]
  - Neutrophil count increased [None]

NARRATIVE: CASE EVENT DATE: 20200307
